FAERS Safety Report 8509629-2 (Version None)
Quarter: 2012Q3

REPORT INFORMATION
  Report Type: 
  Country: None (occurrence: None)
  Receive Date: 20120713
  Receipt Date: 20120703
  Transmission Date: 20120928
  Serious: Yes (Hospitalization)
  Sender: FDA-Public Use
  Company Number: CN-PFIZER INC-2012160850

PATIENT
  Age: 61 Year
  Sex: Male

DRUGS (2)
  1. UREA [Concomitant]
  2. SUNITINIB MALATE [Suspect]
     Indication: RENAL CELL CARCINOMA
     Dosage: 50 MG, 1X/DAY
     Route: 048
     Dates: start: 20100120, end: 20110731

REACTIONS (1)
  - GASTRITIS [None]
